FAERS Safety Report 21144971 (Version 1)
Quarter: 2022Q3

REPORT INFORMATION
  Report Type: Report from Study
  Country: CN (occurrence: CN)
  Receive Date: 20220728
  Receipt Date: 20220728
  Transmission Date: 20221027
  Serious: Yes (Other)
  Sender: FDA-Public Use
  Company Number: CN-SUN PHARMACEUTICAL INDUSTRIES LTD-2022R1-346488

PATIENT
  Age: 35 Year
  Sex: Male

DRUGS (5)
  1. DOXORUBICIN [Suspect]
     Active Substance: DOXORUBICIN
     Indication: Thymoma
     Dosage: UNK
     Route: 065
  2. CISPLATIN [Suspect]
     Active Substance: CISPLATIN
     Indication: Thymoma
     Dosage: 70 MILLIGRAM/SQ. METER
     Route: 065
  3. PEMETREXED [Suspect]
     Active Substance: PEMETREXED
     Indication: Thymoma
     Dosage: UNK
     Route: 065
  4. CYCLOPHOSPHAMIDE [Suspect]
     Active Substance: CYCLOPHOSPHAMIDE
     Indication: Thymoma
     Dosage: UNK
     Route: 065
  5. NAVELBINE [Suspect]
     Active Substance: VINORELBINE TARTRATE
     Indication: Thymoma
     Dosage: UNK
     Route: 065

REACTIONS (1)
  - Hypertension [Unknown]
